FAERS Safety Report 7679931-5 (Version None)
Quarter: 2011Q3

REPORT INFORMATION
  Report Type: 
  Country: None (occurrence: None)
  Receive Date: 20110812
  Receipt Date: 20110810
  Transmission Date: 20111222
  Serious: Yes (Other)
  Sender: FDA-Public Use
  Company Number: FI-PFIZER INC-2011183207

PATIENT
  Sex: Female

DRUGS (2)
  1. AGOMELATINE [Suspect]
  2. SERTRALINE HYDROCHLORIDE [Suspect]

REACTIONS (2)
  - HYPOACUSIS [None]
  - VISUAL IMPAIRMENT [None]
